FAERS Safety Report 10631478 (Version 1)
Quarter: 2014Q4

REPORT INFORMATION
  Report Type: Spontaneous
  Country: US (occurrence: US)
  Receive Date: 20141205
  Receipt Date: 20141205
  Transmission Date: 20150529
  Serious: No
  Sender: FDA-Public Use
  Company Number: US-BRISTOL-MYERS SQUIBB COMPANY-21471768

PATIENT
  Age: 66 Year
  Sex: Female
  Weight: 99.77 kg

DRUGS (4)
  1. GLIMEPIRIDE. [Concomitant]
     Active Substance: GLIMEPIRIDE
  2. LANTUS [Concomitant]
     Active Substance: INSULIN GLARGINE
  3. METFORMIN HCL [Concomitant]
     Active Substance: METFORMIN HYDROCHLORIDE
  4. BYETTA [Suspect]
     Active Substance: EXENATIDE
     Indication: TYPE 2 DIABETES MELLITUS
     Dosage: ONGOING
     Route: 058
     Dates: start: 2006

REACTIONS (11)
  - Wrong technique in drug usage process [Unknown]
  - Flatulence [Unknown]
  - Incorrect dose administered [Unknown]
  - Neuropathy peripheral [Unknown]
  - Decreased appetite [Unknown]
  - Product quality issue [Unknown]
  - Weight fluctuation [Unknown]
  - Intentional product misuse [Unknown]
  - Blood glucose increased [Unknown]
  - Depression [Unknown]
  - Hypoaesthesia [Unknown]
